FAERS Safety Report 17032995 (Version 3)
Quarter: 2020Q1

REPORT INFORMATION
  Report Type: Report from Study
  Country: AT (occurrence: AT)
  Receive Date: 20191114
  Receipt Date: 20200311
  Transmission Date: 20200409
  Serious: Yes (Other)
  Sender: FDA-Public Use
  Company Number: AT-MYLANLABS-2019M1109177

PATIENT
  Age: 40 Year
  Sex: Female
  Weight: 60 kg

DRUGS (14)
  1. ENTEROBENE [Concomitant]
     Indication: DIARRHOEA
     Dosage: UNK, ONGOING = CHECKED
     Route: 065
     Dates: start: 20180611
  2. ZOFRAN [Concomitant]
     Active Substance: ONDANSETRON HYDROCHLORIDE
     Dosage: UNK
     Route: 065
     Dates: start: 20190222
  3. CAPECITABINE. [Suspect]
     Active Substance: CAPECITABINE
     Indication: BREAST CANCER
     Dosage: UNK
     Route: 048
     Dates: start: 20190724
  4. TRASTUZUMAB. [Suspect]
     Active Substance: TRASTUZUMAB
     Indication: HER-2 POSITIVE BREAST CANCER
     Dosage: 194.4 MILLIGRAM/KILOGRAM, 3XW
     Route: 042
     Dates: start: 20190222, end: 20190719
  5. TAXOTERE [Suspect]
     Active Substance: DOCETAXEL
     Indication: BREAST CANCER
     Dosage: 75 MILLIGRAM/SQ. METER, Q3W
     Route: 042
     Dates: start: 20180426, end: 20180817
  6. DRONABINOL. [Concomitant]
     Active Substance: DRONABINOL
     Dosage: UNK, ONGOING = CHECKED
  7. TRASTUZUMAB. [Suspect]
     Active Substance: TRASTUZUMAB
     Dosage: MOST RECENT DOSE PRIOR TO EVENT: 17/MAY/2018 MOST RECENT DOSE PRIOR TO EVENT: 25/APR/2018
     Route: 042
     Dates: start: 20180425
  8. PERTUZUMAB. [Suspect]
     Active Substance: PERTUZUMAB
     Indication: HER-2 POSITIVE BREAST CANCER
     Dosage: MOST RECENT DOSE PRIOR TO THE EVENT: 17/MAY/2018
     Route: 042
     Dates: start: 20180425
  9. CIPROXIN                           /00697201/ [Concomitant]
     Active Substance: CIPROFLOXACIN
     Dosage: ONGOING = CHECKED
     Dates: end: 20191116
  10. FORTECORTIN                        /00016001/ [Concomitant]
     Active Substance: DEXAMETHASONE
     Dosage: UNK
     Route: 065
     Dates: start: 20190222
  11. PANTOLOC                           /01263201/ [Concomitant]
     Active Substance: PANTOPRAZOLE SODIUM
     Dosage: UNK, ONGOING = CHECKED
     Route: 065
  12. XGEVA [Suspect]
     Active Substance: DENOSUMAB
     Indication: BREAST CANCER
     Dosage: UNK
     Route: 065
     Dates: start: 20180618
  13. XGEVA [Suspect]
     Active Substance: DENOSUMAB
     Indication: BREAST CANCER
     Dosage: 120 MILLIGRAM, 4XW
     Route: 058
     Dates: start: 20180502
  14. PENTASA [Concomitant]
     Active Substance: MESALAMINE
     Dosage: UNK, ONGOING = CHECKED
     Route: 065

REACTIONS (9)
  - Thoracic vertebral fracture [Not Recovered/Not Resolved]
  - Vomiting [Not Recovered/Not Resolved]
  - Weight decreased [Recovered/Resolved]
  - Anxiety [Recovered/Resolved]
  - Abdominal distension [Recovered/Resolved]
  - Fistula [Recovered/Resolved]
  - Diarrhoea [Not Recovered/Not Resolved]
  - Dyspnoea [Recovered/Resolved]
  - General physical health deterioration [Not Recovered/Not Resolved]

NARRATIVE: CASE EVENT DATE: 20180611
